FAERS Safety Report 7313529-3 (Version None)
Quarter: 2011Q1

REPORT INFORMATION
  Report Type: 
  Country: None (occurrence: None)
  Receive Date: 20110225
  Receipt Date: 20100909
  Transmission Date: 20110831
  Serious: Yes (Other)
  Sender: FDA-Public Use
  Company Number: US-BAYER-201019493NA

PATIENT
  Sex: Female
  Weight: 58 kg

DRUGS (5)
  1. NEXIUM [Concomitant]
  2. ADVIL [Concomitant]
  3. THYROID TAB [Concomitant]
  4. YAZ [Suspect]
     Indication: ORAL CONTRACEPTION
     Dosage: UNK
     Route: 048
     Dates: start: 20070701, end: 20081101
  5. YASMIN [Suspect]
     Indication: ORAL CONTRACEPTION
     Dosage: UNK
     Route: 048
     Dates: start: 20070701, end: 20081101

REACTIONS (9)
  - CHOLECYSTITIS CHRONIC [None]
  - CHEST PAIN [None]
  - BILIARY DYSKINESIA [None]
  - ABDOMINAL PAIN [None]
  - ABDOMINAL PAIN UPPER [None]
  - PAIN [None]
  - VOMITING [None]
  - NAUSEA [None]
  - DIARRHOEA [None]
